FAERS Safety Report 7033702-1 (Version None)
Quarter: 2010Q4

REPORT INFORMATION
  Report Type: 
  Country: None (occurrence: None)
  Receive Date: 20101007
  Receipt Date: 20100929
  Transmission Date: 20110411
  Serious: Yes (Other)
  Sender: FDA-Public Use
  Company Number: US-ELI_LILLY_AND_COMPANY-US201006006052

PATIENT
  Sex: Male
  Weight: 90.249 kg

DRUGS (12)
  1. ADCIRCA [Suspect]
     Indication: PULMONARY HYPERTENSION
     Dosage: 40 MG, UNK
     Dates: start: 20100120, end: 20100525
  2. TREPROSTINIL [Concomitant]
     Indication: PULMONARY HYPERTENSION
  3. COREG [Concomitant]
  4. LASIX [Concomitant]
  5. SPIRONOLACTONE [Concomitant]
  6. PLAQUENIL [Concomitant]
  7. COUMADIN [Concomitant]
  8. SIMVASTATIN [Concomitant]
  9. AMARYL [Concomitant]
  10. METFORMIN [Concomitant]
  11. NEURONTIN [Concomitant]
  12. PERSANTINE [Concomitant]

REACTIONS (6)
  - BILIARY CIRRHOSIS [None]
  - BLINDNESS [None]
  - CHOLANGITIS [None]
  - DIPLOPIA [None]
  - PULMONARY HYPERTENSION [None]
  - VISION BLURRED [None]
